FAERS Safety Report 6176564-7 (Version None)
Quarter: 2009Q2

REPORT INFORMATION
  Report Type: 
  Country: None (occurrence: None)
  Receive Date: 20090501
  Receipt Date: 20090420
  Transmission Date: 20091009
  Serious: Yes (Other)
  Sender: FDA-Public Use
  Company Number: US-CELGENEUS-163-20785-09042078

PATIENT

DRUGS (6)
  1. THALOMID [Suspect]
     Route: 048
  2. THALOMID [Suspect]
     Route: 048
  3. FLUDARABINE PHOSPHATE [Suspect]
     Route: 051
  4. ACYCLOVIR [Concomitant]
     Indication: PROPHYLAXIS
     Route: 048
  5. BACTRIM DS [Concomitant]
     Route: 048
  6. WARFARIN SODIUM [Concomitant]
     Dosage: WEIGHT-ADJUSTED LOW DOSE
     Route: 065

REACTIONS (5)
  - CONSTIPATION [None]
  - NAUSEA [None]
  - NEUTROPENIA [None]
  - THROMBOCYTOPENIA [None]
  - TUMOUR FLARE [None]
